FAERS Safety Report 6025841-9 (Version None)
Quarter: 2008Q4

REPORT INFORMATION
  Report Type: 
  Country: None (occurrence: None)
  Receive Date: 20081229
  Receipt Date: 20081218
  Transmission Date: 20090506
  Serious: Yes (Death, Hospitalization)
  Sender: FDA-Public Use
  Company Number: 2008-188604-NL

PATIENT
  Sex: Female

DRUGS (1)
  1. NUVARING [Suspect]
     Dates: start: 20080901

REACTIONS (3)
  - BRAIN OEDEMA [None]
  - CEREBRAL THROMBOSIS [None]
  - HEPATIC VEIN THROMBOSIS [None]
